FAERS Safety Report 16394406 (Version 3)
Quarter: 2019Q3

REPORT INFORMATION
  Report Type: Report from Study
  Country: US (occurrence: US)
  Receive Date: 20190605
  Receipt Date: 20190827
  Transmission Date: 20191004
  Serious: Yes (Hospitalization, Other)
  Sender: FDA-Public Use
  Company Number: US-JNJFOC-20190600265

PATIENT
  Age: 65 Year
  Sex: Female

DRUGS (2)
  1. IMBRUVICA [Suspect]
     Active Substance: IBRUTINIB
     Indication: B-CELL SMALL LYMPHOCYTIC LYMPHOMA
     Route: 048
     Dates: start: 20190503
  2. IMBRUVICA [Suspect]
     Active Substance: IBRUTINIB
     Route: 048
     Dates: start: 201905

REACTIONS (8)
  - Dry mouth [Not Recovered/Not Resolved]
  - White blood cell count decreased [Recovered/Resolved]
  - Musculoskeletal pain [Unknown]
  - Intra-abdominal fluid collection [Unknown]
  - Anxiety [Not Recovered/Not Resolved]
  - Postoperative wound complication [Unknown]
  - Pleural effusion [Recovered/Resolved]
  - Muscle spasms [Unknown]

NARRATIVE: CASE EVENT DATE: 201906
